FAERS Safety Report 20398589 (Version 2)
Quarter: 2022Q1

REPORT INFORMATION
  Report Type: Spontaneous
  Country: US (occurrence: US)
  Receive Date: 20220131
  Receipt Date: 20220201
  Transmission Date: 20220423
  Serious: No
  Sender: FDA-Public Use
  Company Number: US-ABBVIE-21K-163-3844168-00

PATIENT
  Sex: Female
  Weight: 57.204 kg

DRUGS (4)
  1. HUMIRA [Suspect]
     Active Substance: ADALIMUMAB
     Indication: Psoriatic arthropathy
     Route: 058
  2. HUMIRA [Suspect]
     Active Substance: ADALIMUMAB
     Route: 058
  3. ATORVASTATIN [Concomitant]
     Active Substance: ATORVASTATIN
     Indication: Blood cholesterol increased
  4. LISINOPRIL [Concomitant]
     Active Substance: LISINOPRIL
     Indication: Hypertension

REACTIONS (6)
  - Psoriasis [Recovered/Resolved]
  - Scar [Recovered/Resolved]
  - Precancerous condition [Recovered/Resolved]
  - Psoriatic arthropathy [Recovered/Resolved]
  - Hypertension [Not Recovered/Not Resolved]
  - Coeliac disease [Not Recovered/Not Resolved]
